FAERS Safety Report 6598802-9 (Version None)
Quarter: 2010Q1

REPORT INFORMATION
  Report Type: 
  Country: None (occurrence: None)
  Receive Date: 20100216
  Receipt Date: 20100208
  Transmission Date: 20100710
  Serious: Yes (Disabling)
  Sender: FDA-Public Use
  Company Number: CIP10000233

PATIENT
  Age: 77 Year
  Sex: Female

DRUGS (7)
  1. ACTONEL [Suspect]
     Indication: OSTEOPOROSIS
     Dosage: 150 MG ONCE MONTHLY, ORAL
     Route: 048
     Dates: start: 20090827
  2. OSTEVIT-D (COLECALCIFEROL) [Concomitant]
  3. LOSEC /00661201/ (OMEPRAZOLE) [Concomitant]
  4. PANAMAX (PARACETAMOL) [Concomitant]
  5. CRESTOR [Concomitant]
  6. CELESTONE /00008501/ (BETAMETHASONE) [Concomitant]
  7. CALTRATE /00108001/ (CALCIUM CARBONATE) [Concomitant]

REACTIONS (7)
  - BLOOD CREATINE INCREASED [None]
  - BLOOD UREA INCREASED [None]
  - DECREASED APPETITE [None]
  - FEELING ABNORMAL [None]
  - GLOMERULAR FILTRATION RATE DECREASED [None]
  - RENAL DISORDER [None]
  - THIRST [None]
